FAERS Safety Report 10284281 (Version 1)
Quarter: 2014Q3

REPORT INFORMATION
  Report Type: Spontaneous
  Country: GB (occurrence: GB)
  Receive Date: 20140708
  Receipt Date: 20140708
  Transmission Date: 20150326
  Serious: Yes (Death, Other)
  Sender: FDA-Public Use
  Company Number: GB-PFIZER INC-2014189396

PATIENT
  Age: 49 Year
  Sex: Male
  Weight: 93 kg

DRUGS (5)
  1. ZAPONEX [Suspect]
     Active Substance: CLOZAPINE
     Dosage: UNK
     Route: 048
     Dates: start: 20050721, end: 20140130
  2. MORPHINE SULFATE. [Suspect]
     Active Substance: MORPHINE SULFATE
     Dosage: UNK
     Route: 065
  3. METHADONE [Suspect]
     Active Substance: METHADONE HYDROCHLORIDE
     Dosage: UNK
     Route: 065
  4. CLOZAPINE. [Suspect]
     Active Substance: CLOZAPINE
     Dosage: UNK
     Route: 065
     Dates: start: 20000518
  5. COCAINE [Suspect]
     Active Substance: COCAINE
     Dosage: UNK
     Route: 065

REACTIONS (18)
  - Visceral congestion [Not Recovered/Not Resolved]
  - Diabetes mellitus [Fatal]
  - Pulmonary oedema [Not Recovered/Not Resolved]
  - Right ventricular hypertrophy [Not Recovered/Not Resolved]
  - Nephrosclerosis [Not Recovered/Not Resolved]
  - Pulmonary alveolar haemorrhage [Not Recovered/Not Resolved]
  - Myocardial fibrosis [Not Recovered/Not Resolved]
  - Nodule [Not Recovered/Not Resolved]
  - Chronic obstructive pulmonary disease [Fatal]
  - Hepatic fibrosis [Not Recovered/Not Resolved]
  - Goitre [Not Recovered/Not Resolved]
  - Respiratory depression [Fatal]
  - Aortic arteriosclerosis [Not Recovered/Not Resolved]
  - Myocardial haemorrhage [Not Recovered/Not Resolved]
  - Kidney fibrosis [Not Recovered/Not Resolved]
  - Bronchopneumonia [Fatal]
  - Toxicity to various agents [Fatal]
  - Brain oedema [Not Recovered/Not Resolved]
